FAERS Safety Report 4522754-6 (Version None)
Quarter: 2004Q4

REPORT INFORMATION
  Report Type: 
  Country: None (occurrence: None)
  Receive Date: 20041208
  Receipt Date: 20041125
  Transmission Date: 20050328
  Serious: Yes (Hospitalization)
  Sender: FDA-Public Use
  Company Number: 2004099644

PATIENT
  Age: 30 Year
  Sex: Male

DRUGS (10)
  1. HYDROXYZINE HCL [Suspect]
     Indication: ILL-DEFINED DISORDER
  2. NAPROXEN [Suspect]
     Indication: ILL-DEFINED DISORDER
     Dosage: ORAL
     Route: 048
  3. LOFEXIDINE (LOFEXIDINE) [Concomitant]
  4. METOCLOPRAMIDE [Concomitant]
  5. ACETAMINOPHEN [Concomitant]
  6. DIAZEPAM [Concomitant]
  7. PROMAZINE HCL [Concomitant]
  8. DOXEPIN (DOXEPIN) [Concomitant]
  9. POTASSIUM CHLORIDE [Concomitant]
  10. MAGNESIUM HYDROXIDE (MAGNESIUM HYDROXIDE) [Concomitant]

REACTIONS (1)
  - DRUG ERUPTION [None]
